FAERS Safety Report 8142010-7 (Version None)
Quarter: 2012Q1

REPORT INFORMATION
  Report Type: 
  Country: None (occurrence: None)
  Receive Date: 20120216
  Receipt Date: 20120208
  Transmission Date: 20120608
  Serious: Yes (Other)
  Sender: FDA-Public Use
  Company Number: US-B.I. PHARMACEUTICALS,INC./RIDGEFIELD-2011-DE-00444GD

PATIENT
  Sex: Male

DRUGS (3)
  1. CARBIDOPA AND LEVODOPA [Suspect]
     Indication: PARKINSON'S DISEASE
     Dosage: CARBIDOPA/LEVODOPA 25/100 MG 1.5 TABLETS TID
     Route: 048
  2. PRAMIPEXOLE DIHYCHLLORIDE [Suspect]
     Indication: PARKINSON'S DISEASE
     Dosage: 4.5 MG
  3. PRAMIPEXOLE DIHYCHLLORIDE [Suspect]
     Dosage: 0.375 MG TITRATED UP TO 4.5 MG

REACTIONS (5)
  - JEALOUS DELUSION [None]
  - MARITAL PROBLEM [None]
  - PATHOLOGICAL GAMBLING [None]
  - COMPULSIVE SHOPPING [None]
  - HYPERSEXUALITY [None]
